FAERS Safety Report 4903126-9 (Version None)
Quarter: 2006Q1

REPORT INFORMATION
  Report Type: 
  Country: None (occurrence: None)
  Receive Date: 20060207
  Receipt Date: 20060126
  Transmission Date: 20060701
  Serious: Yes (Other)
  Sender: FDA-Public Use
  Company Number: US-ROCHE-434106

PATIENT
  Age: 53 Year
  Sex: Male
  Weight: 128.4 kg

DRUGS (4)
  1. INVIRASE [Suspect]
     Route: 048
     Dates: start: 19950615
  2. EPIVIR [Concomitant]
     Route: 048
  3. ATENOLOL [Concomitant]
     Indication: HYPERTENSION
     Dosage: FREQUENCY REPORTED AS 'PID'
     Route: 048
  4. HYDROCHLOROTHIAZIDE [Concomitant]
     Indication: HYPERTENSION
     Route: 048

REACTIONS (4)
  - DIABETES MELLITUS [None]
  - HYPOTHYROIDISM [None]
  - MYOCARDIAL INFARCTION [None]
  - WEIGHT INCREASED [None]
